FAERS Safety Report 5155762-5 (Version None)
Quarter: 2006Q4

REPORT INFORMATION
  Report Type: 
  Country: None (occurrence: None)
  Receive Date: 20061113
  Receipt Date: 20061031
  Transmission Date: 20070319
  Serious: Yes (Death, Other)
  Sender: FDA-Public Use
  Company Number: 163-21880-06110066

PATIENT
  Age: 67 Year
  Sex: Male

DRUGS (1)
  1. REVLIMID [Suspect]
     Indication: MYELODYSPLASTIC SYNDROME
     Dosage: 5 MG, 1 IN 1 D, ORAL
     Route: 048
     Dates: start: 20060905

REACTIONS (6)
  - CONSTIPATION [None]
  - DRUG TOXICITY [None]
  - HAEMORRHOIDS [None]
  - PAIN [None]
  - RASH ERYTHEMATOUS [None]
  - RASH MACULAR [None]
